FAERS Safety Report 7526548-9 (Version None)
Quarter: 2011Q2

REPORT INFORMATION
  Report Type: 
  Country: None (occurrence: None)
  Receive Date: 20110606
  Receipt Date: 20110524
  Transmission Date: 20111010
  Serious: Yes (Other)
  Sender: FDA-Public Use
  Company Number: US-ELI_LILLY_AND_COMPANY-US201103008542

PATIENT
  Sex: Female

DRUGS (3)
  1. CALCIUM CARBONATE [Concomitant]
  2. FORTEO [Suspect]
     Dosage: 20 UG, OTHER
     Route: 058
  3. FORTEO [Suspect]
     Indication: OSTEOPOROSIS
     Dosage: 20 UG, QD
     Route: 058
     Dates: start: 20091201

REACTIONS (3)
  - MALAISE [None]
  - BRAIN NEOPLASM [None]
  - NEPHROLITHIASIS [None]
